FAERS Safety Report 4695046-2 (Version None)
Quarter: 2005Q2

REPORT INFORMATION
  Report Type: 
  Country: None (occurrence: None)
  Receive Date: 20050617
  Receipt Date: 20050607
  Transmission Date: 20051028
  Serious: Yes (Other)
  Sender: FDA-Public Use
  Company Number: 2005086809

PATIENT
  Age: 33 Year
  Sex: Female
  Weight: 95.2554 kg

DRUGS (1)
  1. DEPO-PROVERA [Suspect]
     Indication: OVARIAN CYST
     Dosage: 150 MG (150 MG, 1ST INJECTION, EVERY 10-13 WEEKS), INTRAMUSCULAR
     Route: 030
     Dates: start: 20040901, end: 20040901

REACTIONS (2)
  - BACK PAIN [None]
  - HAEMATOCHEZIA [None]
